FAERS Safety Report 5187915-4 (Version None)
Quarter: 2006Q4

REPORT INFORMATION
  Report Type: 
  Country: None (occurrence: None)
  Receive Date: 20061221
  Receipt Date: 20061211
  Transmission Date: 20070319
  Serious: Yes (Hospitalization)
  Sender: FDA-Public Use
  Company Number: PHRM2006FR03289

PATIENT
  Age: 60 Year
  Sex: Female

DRUGS (11)
  1. NITRODERM [Suspect]
     Dosage: 1 DF, QD
     Route: 062
     Dates: start: 20020615, end: 20060215
  2. ALLOPURINOL [Suspect]
     Dosage: 300 MG, QD
     Route: 048
     Dates: start: 20040315
  3. GLIMEPIRIDE [Suspect]
     Indication: DIABETES MELLITUS NON-INSULIN-DEPENDENT
     Dosage: 4 MG, QD
     Route: 048
  4. ZOCOR [Suspect]
     Dosage: 20 MG, QD
     Route: 048
     Dates: start: 20020615
  5. TRIATEC [Suspect]
     Dosage: 5 MG, QD
     Route: 048
     Dates: start: 20020615
  6. ASPIRIN [Suspect]
     Dosage: 160 MG, QD
     Route: 048
     Dates: start: 20020615
  7. UMULINE [Concomitant]
     Indication: DIABETES MELLITUS NON-INSULIN-DEPENDENT
  8. LEVOTHYROXINE SODIUM [Concomitant]
     Route: 048
  9. ATARAX [Concomitant]
     Route: 048
  10. LASIX [Concomitant]
     Indication: ACUTE PULMONARY OEDEMA
     Dates: start: 20040301
  11. IMOVANE [Concomitant]
     Route: 048

REACTIONS (7)
  - ANTINUCLEAR ANTIBODY POSITIVE [None]
  - DERMATITIS PSORIASIFORM [None]
  - DNA ANTIBODY POSITIVE [None]
  - LICHENOID KERATOSIS [None]
  - PRURITUS [None]
  - PSORIASIS [None]
  - TOXIC SKIN ERUPTION [None]
